FAERS Safety Report 14488619 (Version 3)
Quarter: 2018Q3

REPORT INFORMATION
  Report Type: Report from Study
  Country: US (occurrence: US)
  Receive Date: 20180205
  Receipt Date: 20180927
  Transmission Date: 20181010
  Serious: Yes (Other)
  Sender: FDA-Public Use
  Company Number: US-ACTELION-A-NJ2018-165694

PATIENT
  Age: 55 Year
  Sex: Female

DRUGS (28)
  1. ALPRAZOLAM. [Concomitant]
     Active Substance: ALPRAZOLAM
  2. HYDROCODONE BITARTRATE AND ACETAMINOPHEN [Concomitant]
     Active Substance: ACETAMINOPHEN\HYDROCODONE BITARTRATE
  3. ALLEGRA?D [Concomitant]
     Active Substance: FEXOFENADINE\PSEUDOEPHEDRINE
  4. METHYLPREDNISOLONE. [Concomitant]
     Active Substance: METHYLPREDNISOLONE
  5. OPSUMIT [Suspect]
     Active Substance: MACITENTAN
     Indication: PULMONARY ARTERIAL HYPERTENSION
     Dosage: 10 MG, QD
     Route: 048
     Dates: start: 20150512
  6. OMEPRAZOLE. [Concomitant]
     Active Substance: OMEPRAZOLE
     Dosage: 10 MG, UNK
     Dates: start: 20160429
  7. ROGAINE [Concomitant]
     Active Substance: MINOXIDIL
     Dosage: 2 %, UNK
     Dates: start: 20170530
  8. PREDNISONE. [Concomitant]
     Active Substance: PREDNISONE
  9. CYANOCOBALAMIN. [Concomitant]
     Active Substance: CYANOCOBALAMIN
     Dosage: 1000 MCG, UNK
     Dates: start: 20180302
  10. DULOXETINE. [Concomitant]
     Active Substance: DULOXETINE
  11. SILDENAFIL. [Concomitant]
     Active Substance: SILDENAFIL
     Dosage: 20 MG, UNK
     Dates: start: 20160429
  12. LOSARTAN. [Concomitant]
     Active Substance: LOSARTAN
     Dosage: 100 ? 12.5
     Dates: start: 20170801
  13. VENTOLIN [Concomitant]
     Active Substance: ALBUTEROL SULFATE
  14. SYMBICORT [Concomitant]
     Active Substance: BUDESONIDE\FORMOTEROL FUMARATE DIHYDRATE
     Dosage: 160 ? 4.5
     Dates: start: 20180217
  15. LORATADINE. [Concomitant]
     Active Substance: LORATADINE
  16. CLOBETASOL [Concomitant]
     Active Substance: CLOBETASOL
  17. AMOXICILLIN + CLAV. POTASSIUM [Concomitant]
     Active Substance: AMOXICILLIN\CLAVULANATE POTASSIUM
  18. OMEPRAZOLE. [Concomitant]
     Active Substance: OMEPRAZOLE
     Dosage: 20 MG, UNK
     Dates: start: 20171115
  19. NAPROXEN. [Concomitant]
     Active Substance: NAPROXEN
  20. LOSARTAN. [Concomitant]
     Active Substance: LOSARTAN
     Dosage: 50 MG, UNK
     Dates: start: 20161228
  21. IBUPROFEN. [Concomitant]
     Active Substance: IBUPROFEN
     Dosage: UNK
     Dates: start: 20160429
  22. CLARITHROMYCIN. [Concomitant]
     Active Substance: CLARITHROMYCIN
  23. MINOCYCLINE [Concomitant]
     Active Substance: MINOCYCLINE\MINOCYCLINE HYDROCHLORIDE
     Dosage: 50 MG, UNK
     Dates: start: 20171009
  24. LOSARTAN/HCT [Concomitant]
     Active Substance: HYDROCHLOROTHIAZIDE\LOSARTAN POTASSIUM
  25. IPRATROPIUM [Concomitant]
     Active Substance: IPRATROPIUM
     Dosage: UNK
     Dates: start: 20160626
  26. LEVOFLOXACIN. [Concomitant]
     Active Substance: LEVOFLOXACIN
  27. FLUOCINONIDE. [Concomitant]
     Active Substance: FLUOCINONIDE
     Dosage: 0.05 %, UNK
     Dates: start: 20170301
  28. IPRATROPIUM W/SALBUTAMOL [Concomitant]

REACTIONS (9)
  - Dizziness [Recovered/Resolved]
  - Hypoaesthesia oral [Recovered/Resolved]
  - Alopecia [Not Recovered/Not Resolved]
  - Drug dose omission [Recovered/Resolved]
  - Erythema [Recovered/Resolved]
  - Hypoaesthesia [Recovered/Resolved]
  - Muscle spasms [Recovered/Resolved]
  - Bronchitis [Not Recovered/Not Resolved]
  - Nasal congestion [Not Recovered/Not Resolved]

NARRATIVE: CASE EVENT DATE: 201801
